FAERS Safety Report 4986327-3 (Version None)
Quarter: 2006Q2

REPORT INFORMATION
  Report Type: 
  Country: None (occurrence: None)
  Receive Date: 20060428
  Receipt Date: 20051103
  Transmission Date: 20061013
  Serious: Yes (Hospitalization)
  Sender: FDA-Public Use
  Company Number: NO-MERCK-0511NOR00012

PATIENT
  Age: 73 Year
  Sex: Female

DRUGS (7)
  1. VIOXX [Suspect]
     Indication: OSTEOARTHRITIS
     Route: 048
     Dates: start: 20021107, end: 20021229
  2. VIOXX [Suspect]
     Route: 048
     Dates: start: 20021230, end: 20040301
  3. SUMATRIPTAN SUCCINATE [Concomitant]
     Indication: MIGRAINE
     Route: 065
  4. ZOLPIDEM TARTRATE [Concomitant]
     Indication: INSOMNIA
     Route: 065
  5. LEVOCABASTINE HYDROCHLORIDE [Concomitant]
     Indication: HYPERSENSITIVITY
     Route: 065
  6. EBASTINE [Concomitant]
     Route: 065
  7. ZOPICLONE [Concomitant]
     Route: 065

REACTIONS (2)
  - CEREBRAL INFARCTION [None]
  - HYPERTENSION [None]
